FAERS Safety Report 26106916 (Version 1)
Quarter: 2025Q4

REPORT INFORMATION
  Report Type: Spontaneous
  Country: US (occurrence: US)
  Receive Date: 20251201
  Receipt Date: 20251201
  Transmission Date: 20260118
  Serious: No
  Sender: STALLERGENES
  Company Number: US-STALCOR-2025-AER-03112

PATIENT
  Sex: Female

DRUGS (2)
  1. PALFORZIA [Suspect]
     Active Substance: PEANUT
     Indication: Food allergy
     Dosage: DISPENSED ON 23-OCT-2025
     Route: 048
  2. EPIPEN [Concomitant]
     Active Substance: EPINEPHRINE
     Indication: Product used for unknown indication

REACTIONS (2)
  - Abdominal discomfort [Unknown]
  - Oropharyngeal pain [Unknown]
